FAERS Safety Report 12318592 (Version 1)
Quarter: 2016Q2

REPORT INFORMATION
  Report Type: Spontaneous
  Country: CH (occurrence: CH)
  Receive Date: 20160429
  Receipt Date: 20160429
  Transmission Date: 20160815
  Serious: Yes (Hospitalization)
  Sender: FDA-Public Use
  Company Number: CH-SA-2016SA081505

PATIENT
  Age: 95 Year
  Sex: Female
  Weight: 75 kg

DRUGS (16)
  1. CLEXANE [Interacting]
     Active Substance: ENOXAPARIN SODIUM
     Indication: TRANSIENT ISCHAEMIC ATTACK
     Route: 065
  2. KLACID [Interacting]
     Active Substance: CLARITHROMYCIN
     Indication: PNEUMONIA LEGIONELLA
     Route: 048
     Dates: start: 20160125, end: 20160126
  3. LYRICA [Concomitant]
     Active Substance: PREGABALIN
     Indication: POST HERPETIC NEURALGIA
     Route: 048
  4. CLEXANE [Suspect]
     Active Substance: ENOXAPARIN SODIUM
     Indication: TRANSIENT ISCHAEMIC ATTACK
     Route: 058
     Dates: start: 20160201, end: 20160308
  5. ATORVASTATIN [Interacting]
     Active Substance: ATORVASTATIN
     Indication: TRANSIENT ISCHAEMIC ATTACK
     Route: 048
     Dates: start: 201511
  6. ATORVASTATIN [Interacting]
     Active Substance: ATORVASTATIN
     Indication: TRANSIENT ISCHAEMIC ATTACK
     Route: 048
  7. SINTROM [Interacting]
     Active Substance: ACENOCOUMAROL
     Indication: TRANSIENT ISCHAEMIC ATTACK
     Route: 048
     Dates: start: 20160205, end: 20160212
  8. AUGMENTIN [Concomitant]
     Active Substance: AMOXICILLIN\CLAVULANATE POTASSIUM
     Route: 041
     Dates: start: 20160125, end: 20160128
  9. FOLIC ACID. [Concomitant]
     Active Substance: FOLIC ACID
     Route: 048
     Dates: start: 20160126
  10. ZYLORIC [Concomitant]
     Active Substance: ALLOPURINOL
     Route: 048
     Dates: end: 20160405
  11. ELIQUIS [Interacting]
     Active Substance: APIXABAN
     Indication: TRANSIENT ISCHAEMIC ATTACK
     Route: 048
     Dates: start: 201511, end: 20160126
  12. TORASEMIDE [Concomitant]
     Active Substance: TORSEMIDE
     Route: 048
     Dates: start: 20160130
  13. SINTROM [Interacting]
     Active Substance: ACENOCOUMAROL
     Indication: TRANSIENT ISCHAEMIC ATTACK
     Route: 065
     Dates: start: 20160301
  14. AUGMENTIN [Concomitant]
     Active Substance: AMOXICILLIN\CLAVULANATE POTASSIUM
     Route: 048
     Dates: start: 20160129, end: 20160130
  15. VI-DE 3 [Concomitant]
     Active Substance: CHOLECALCIFEROL
     Route: 065
  16. LASIX [Concomitant]
     Active Substance: FUROSEMIDE
     Indication: CARDIAC FAILURE
     Route: 048
     Dates: start: 20160125, end: 20160129

REACTIONS (3)
  - Haematuria [Recovered/Resolved]
  - Muscle haemorrhage [Recovered/Resolved]
  - Catheter site haemorrhage [Recovered/Resolved]

NARRATIVE: CASE EVENT DATE: 20160126
